FAERS Safety Report 10302866 (Version 2)
Quarter: 2014Q4

REPORT INFORMATION
  Report Type: Spontaneous
  Country: CA (occurrence: CA)
  Receive Date: 20140714
  Receipt Date: 20141111
  Transmission Date: 20150528
  Serious: Yes (Disabling)
  Sender: FDA-Public Use
  Company Number: CA-TEVA-494205USA

PATIENT
  Age: 46 Year
  Sex: Female
  Weight: 66 kg

DRUGS (2)
  1. TREANDA [Suspect]
     Active Substance: BENDAMUSTINE HYDROCHLORIDE
     Indication: B-CELL LYMPHOMA
     Route: 042
  2. RITUXAN [Concomitant]
     Active Substance: RITUXIMAB

REACTIONS (6)
  - Pruritus [Unknown]
  - Pain [Unknown]
  - Fall [Unknown]
  - Paraesthesia [Unknown]
  - Pain in extremity [Unknown]
  - Movement disorder [Unknown]

NARRATIVE: CASE EVENT DATE: 20131117
